FAERS Safety Report 5326703-2 (Version None)
Quarter: 2007Q2

REPORT INFORMATION
  Report Type: 
  Country: None (occurrence: None)
  Receive Date: 20070516
  Receipt Date: 20060203
  Transmission Date: 20071010
  Serious: Yes (Hospitalization)
  Sender: FDA-Public Use
  Company Number: BR-BOEHRINGER INGELHEIM PHARMACEUTICALS, INC.-2006-BP-01020BR

PATIENT
  Sex: Male

DRUGS (12)
  1. TIPRANAVIR / RITONAVIR CAPSULES [Suspect]
     Indication: HIV INFECTION
     Dosage: TPV/RTV 1000MG/400MG
     Route: 048
     Dates: start: 20031015
  2. TENOFOVIR [Concomitant]
     Indication: HIV INFECTION
  3. ABACAVIR [Concomitant]
     Indication: HIV INFECTION
  4. DIDANOSINE [Concomitant]
     Indication: HIV INFECTION
  5. VIDEX [Concomitant]
     Indication: HIV INFECTION
  6. CO-TRIMOXAZOLE [Concomitant]
     Indication: HIV INFECTION
  7. FLUCONAZOLE [Concomitant]
  8. CALCIUM CARBONATE [Concomitant]
  9. PRAVASTATIN [Concomitant]
  10. VIREAD [Concomitant]
     Indication: HIV INFECTION
  11. DARAPRIM [Concomitant]
  12. ZIAGEN [Concomitant]
     Indication: HIV INFECTION

REACTIONS (5)
  - CEREBRAL TOXOPLASMOSIS [None]
  - DIZZINESS [None]
  - PYREXIA [None]
  - VOMITING [None]
  - WEIGHT DECREASED [None]
